FAERS Safety Report 7865764-3 (Version None)
Quarter: 2011Q4

REPORT INFORMATION
  Report Type: 
  Country: None (occurrence: None)
  Receive Date: 20111028
  Receipt Date: 20110218
  Transmission Date: 20120403
  Serious: No
  Sender: FDA-Public Use
  Company Number: US-GLAXOSMITHKLINE-A0914452A

PATIENT
  Sex: Male

DRUGS (10)
  1. PROAIR HFA [Concomitant]
  2. ZITHROMAX [Concomitant]
  3. BENADRYL [Concomitant]
  4. ASCORBIC ACID [Concomitant]
  5. VITAMIN E [Concomitant]
  6. SUDAFED 12 HOUR [Concomitant]
  7. TYLENOL-500 [Concomitant]
  8. ADVAIR DISKUS 100/50 [Suspect]
     Indication: CHRONIC OBSTRUCTIVE PULMONARY DISEASE
     Dosage: 1PUFF TWICE PER DAY
     Route: 055
     Dates: start: 20100101
  9. VITAMIN D [Concomitant]
  10. MUCINEX [Concomitant]

REACTIONS (5)
  - DRUG ADMINISTRATION ERROR [None]
  - COUGH [None]
  - ABDOMINAL PAIN UPPER [None]
  - SINUSITIS [None]
  - CHEST PAIN [None]
